FAERS Safety Report 4817631-7 (Version None)
Quarter: 2005Q4

REPORT INFORMATION
  Report Type: 
  Country: None (occurrence: None)
  Receive Date: 20051019
  Receipt Date: 20050411
  Transmission Date: 20060501
  Serious: Yes (Hospitalization)
  Sender: FDA-Public Use
  Company Number: PHEH2005US04156

PATIENT
  Age: 39 Year
  Sex: Male

DRUGS (1)
  1. MIACALCIN [Suspect]
     Dosage: 200 IU, ONCE/SINGLE, INTRANASAL
     Dates: start: 20050407, end: 20050407

REACTIONS (2)
  - ANAPHYLACTIC SHOCK [None]
  - SWELLING FACE [None]
